FAERS Safety Report 11405235 (Version 1)
Quarter: 2015Q3

REPORT INFORMATION
  Report Type: Report from Study
  Country: KR (occurrence: KR)
  Receive Date: 20150821
  Receipt Date: 20150821
  Transmission Date: 20151125
  Serious: Yes (Death)
  Sender: FDA-Public Use
  Company Number: KR-OTSUKA-2015_007771

PATIENT
  Age: 55 Year
  Sex: Male

DRUGS (14)
  1. DUPHALAC-EASY [Concomitant]
     Indication: HYPONATRAEMIA
     Dosage: 85 ML, QD
     Route: 048
     Dates: start: 20150729, end: 20150817
  2. LASIX [Concomitant]
     Active Substance: FUROSEMIDE
     Indication: HYPONATRAEMIA
     Dosage: 1 AMPLE QD (SINGLE DOSE)
     Route: 042
     Dates: start: 20150812, end: 20150812
  3. TOLVAPTAN [Suspect]
     Active Substance: TOLVAPTAN
     Indication: HYPONATRAEMIA
     Dosage: 15 MG, BID
     Route: 048
     Dates: start: 20150812, end: 20150812
  4. K-CONTIN [Concomitant]
     Indication: HYPONATRAEMIA
     Dosage: 1200 MG, QD
     Route: 048
     Dates: start: 20150810, end: 20150817
  5. ALDACTONE [Concomitant]
     Active Substance: SPIRONOLACTONE
     Indication: HYPONATRAEMIA
     Dosage: 50 MG, QD
     Route: 048
     Dates: start: 20150808, end: 20150816
  6. WARFARIN [Concomitant]
     Active Substance: WARFARIN
     Indication: PRODUCT USED FOR UNKNOWN INDICATION
     Dosage: 2 MG, QD
     Route: 048
     Dates: start: 20150804, end: 20150815
  7. TOLVAPTAN [Suspect]
     Active Substance: TOLVAPTAN
     Dosage: 30 MG, QD
     Route: 048
     Dates: start: 20150814, end: 20150817
  8. PHAZYME [Concomitant]
     Active Substance: DIMETHICONE 410
     Indication: PRODUCT USED FOR UNKNOWN INDICATION
     Dosage: 2 DF, QD
     Route: 048
     Dates: start: 20150728, end: 20150817
  9. DICHLOZID [Concomitant]
     Indication: HYPONATRAEMIA
     Dosage: 25 MG, QD
     Route: 048
     Dates: start: 20150727, end: 20150817
  10. TRITTICO [Concomitant]
     Active Substance: TRAZODONE HYDROCHLORIDE
     Indication: HYPONATRAEMIA
     Dosage: 50 MG, QD
     Route: 048
     Dates: start: 20150812, end: 20150812
  11. TOLVAPTAN [Suspect]
     Active Substance: TOLVAPTAN
     Dosage: 60 MG, QD
     Route: 048
     Dates: start: 20150813, end: 20150813
  12. STILNOX [Concomitant]
     Active Substance: ZOLPIDEM TARTRATE
     Indication: PRODUCT USED FOR UNKNOWN INDICATION
     Dosage: 10 MG, QD
     Route: 048
     Dates: start: 20150727, end: 20150816
  13. ERDOS [Concomitant]
     Indication: HYPONATRAEMIA
     Dosage: 600 MG, QD
     Route: 048
     Dates: start: 20150727, end: 20150812
  14. MOTILIDONE [Concomitant]
     Indication: PRODUCT USED FOR UNKNOWN INDICATION
     Dosage: 90 MG, QD
     Route: 048
     Dates: start: 20150730, end: 20150817

REACTIONS (1)
  - Disease progression [Fatal]

NARRATIVE: CASE EVENT DATE: 20150819
